FAERS Safety Report 19567315 (Version 1)
Quarter: 2021Q3

REPORT INFORMATION
  Report Type: Spontaneous
  Country: US (occurrence: US)
  Receive Date: 20210714
  Receipt Date: 20210714
  Transmission Date: 20211014
  Serious: No
  Sender: FDA-Public Use
  Company Number: US-SUNOVION-2021SUN002688

PATIENT
  Sex: Male

DRUGS (1)
  1. LATUDA [Suspect]
     Active Substance: LURASIDONE HYDROCHLORIDE
     Dosage: 30 MG (A HALF OF THE LATUDA 60MG TABLET)
     Route: 048

REACTIONS (5)
  - Weight increased [Unknown]
  - Wrong technique in product usage process [Unknown]
  - Somnolence [Unknown]
  - Disturbance in attention [Unknown]
  - Anxiety [Unknown]
